FAERS Safety Report 8918275 (Version 1)
Quarter: 2012Q4

REPORT INFORMATION
  Report Type: 
  Country: US (occurrence: US)
  Receive Date: 20121120
  Receipt Date: 20121120
  Transmission Date: 20130627
  Serious: No
  Sender: FDA-Public Use
  Company Number: US-ASTRAZENECA-2012SE25321

PATIENT
  Age: 75 Year
  Sex: Female
  Weight: 68 kg

DRUGS (13)
  1. NEXIUM [Suspect]
     Indication: GASTROOESOPHAGEAL REFLUX DISEASE
     Route: 048
  2. OMEPRAZOLE [Suspect]
     Indication: GASTROOESOPHAGEAL REFLUX DISEASE
     Route: 048
  3. OMEPRAZOLE [Suspect]
     Indication: GASTROOESOPHAGEAL REFLUX DISEASE
     Route: 048
  4. TYLENOL EXTRA STRENGTH [Concomitant]
     Indication: ARTHRALGIA
  5. PREDNISONE [Concomitant]
     Indication: ARTHRITIS
  6. DILTIAZEM [Concomitant]
     Indication: CARDIAC DISORDER
  7. ADVAIR [Concomitant]
     Indication: CHRONIC OBSTRUCTIVE PULMONARY DISEASE
  8. ADVAIR [Concomitant]
     Indication: EMPHYSEMA
  9. SPIRIVA [Concomitant]
     Indication: CHRONIC OBSTRUCTIVE PULMONARY DISEASE
  10. SPIRIVA [Concomitant]
     Indication: EMPHYSEMA
  11. XOPENEX [Concomitant]
     Indication: CHRONIC OBSTRUCTIVE PULMONARY DISEASE
  12. XOPENEX [Concomitant]
     Indication: EMPHYSEMA
  13. OTC ALLERGY PILLS [Concomitant]
     Indication: HYPERSENSITIVITY

REACTIONS (3)
  - Choking [Unknown]
  - Oedema peripheral [Unknown]
  - Intentional drug misuse [Unknown]
